FAERS Safety Report 11363813 (Version 1)
Quarter: 2015Q3

REPORT INFORMATION
  Report Type: Spontaneous
  Country: US (occurrence: None)
  Receive Date: 20150810
  Receipt Date: 20150810
  Transmission Date: 20151125
  Serious: Yes (Life-Threatening, Other)
  Sender: FDA-Public Use
  Company Number: None

PATIENT
  Sex: Male
  Weight: 92.99 kg

DRUGS (20)
  1. BISOPROLOL-HYDROCHLOROTHIAZIDE [Concomitant]
  2. METFORMIN [Concomitant]
     Active Substance: METFORMIN HYDROCHLORIDE
  3. TRUE TRACK TEST STRIPS [Concomitant]
  4. GABAPENTIN. [Concomitant]
     Active Substance: GABAPENTIN
  5. MEPERIDINE [Concomitant]
     Active Substance: MEPERIDINE
  6. DIAZEPAM. [Concomitant]
     Active Substance: DIAZEPAM
  7. ACETAMINOPHEN-OXYCODONE (PERCOCET) [Concomitant]
  8. HUMALOG [Concomitant]
     Active Substance: INSULIN LISPRO
  9. U-100 INSULIN SYRINGES [Concomitant]
  10. NORTRIPTYLINE [Concomitant]
     Active Substance: NORTRIPTYLINE
  11. ALPRAZOLAM (XANAX) [Concomitant]
  12. INSULIN REGULAR [Concomitant]
     Active Substance: INSULIN NOS
  13. DICYCLOMINE HCI [Concomitant]
  14. TRUE TRACK TEST METER [Concomitant]
  15. QUETIAPINE [Suspect]
     Active Substance: QUETIAPINE
     Indication: INSOMNIA
     Dosage: 50 MG TABLET EVERY 6-8 HRS
     Route: 048
     Dates: start: 2009, end: 2015
  16. ACETAMINOPHEN-HYDROCODONE [Concomitant]
  17. AMOXICILLIN. [Concomitant]
     Active Substance: AMOXICILLIN
  18. QUETIAPINE FUMERATE [Suspect]
     Active Substance: QUETIAPINE FUMARATE
     Dosage: 50 MG, EVERY 6-8 HRS
  19. PROMETHAZINE (PHENERGAN) [Concomitant]
  20. JANUVIA [Concomitant]
     Active Substance: SITAGLIPTIN PHOSPHATE

REACTIONS (5)
  - Visual impairment [None]
  - Weight increased [None]
  - Malaise [None]
  - Dysphagia [None]
  - Type 2 diabetes mellitus [None]

NARRATIVE: CASE EVENT DATE: 20150502
